FAERS Safety Report 14258115 (Version 2)
Quarter: 2017Q4

REPORT INFORMATION
  Report Type: Other
  Country: US (occurrence: US)
  Receive Date: 20171207
  Receipt Date: 20171228
  Transmission Date: 20180321
  Serious: Yes (Hospitalization)
  Sender: FDA-Public Use
  Company Number: US-UNITED THERAPEUTICS-UNT-2017-014777

PATIENT
  Age: 57 Year
  Sex: Female
  Weight: 101.77 kg

DRUGS (4)
  1. LETAIRIS [Concomitant]
     Active Substance: AMBRISENTAN
     Indication: PRODUCT USED FOR UNKNOWN INDICATION
     Dosage: UNK
     Route: 065
  2. REVATIO [Concomitant]
     Active Substance: SILDENAFIL CITRATE
     Indication: PRODUCT USED FOR UNKNOWN INDICATION
     Route: 065
  3. REMODULIN [Suspect]
     Active Substance: TREPROSTINIL
     Indication: PULMONARY HYPERTENSION
     Dosage: 0.047 ?G/KG, CONTINUING
     Route: 041
     Dates: start: 20170428
  4. REMODULIN [Suspect]
     Active Substance: TREPROSTINIL
     Indication: PULMONARY ARTERIAL HYPERTENSION
     Dosage: 0.065 ?G/KG, CONTINUING
     Route: 041

REACTIONS (3)
  - Pulmonary arterial hypertension [Unknown]
  - Wheelchair user [Unknown]
  - Fluid retention [Unknown]

NARRATIVE: CASE EVENT DATE: 2017
